FAERS Safety Report 17455552 (Version 1)
Quarter: 2020Q1

REPORT INFORMATION
  Report Type: Spontaneous
  Country: US (occurrence: US)
  Receive Date: 20200212
  Receipt Date: 20200212
  Transmission Date: 20200409
  Serious: Yes (Congenital Anomaly)
  Sender: FDA-Public Use
  Company Number: None

PATIENT
  Age: 58 Year
  Sex: Male
  Weight: 94.8 kg

DRUGS (3)
  1. OXYCODONE [Suspect]
     Active Substance: OXYCODONE
     Indication: PAIN
     Dosage: ?          OTHER STRENGTH:5-325;QUANTITY:12;?
  2. DIAZEPAM. [Suspect]
     Active Substance: DIAZEPAM
     Indication: MUSCLE SPASMS
     Dosage: ?          QUANTITY:8;?
     Dates: start: 20200109
  3. ACETAMINOPHEN. [Suspect]
     Active Substance: ACETAMINOPHEN

REACTIONS (5)
  - Throat irritation [None]
  - Hallucination [None]
  - Fatigue [None]
  - Chest discomfort [None]
  - Dyspnoea [None]

NARRATIVE: CASE EVENT DATE: 20200109
